FAERS Safety Report 9146778 (Version 1)
Quarter: 2013Q1

REPORT INFORMATION
  Report Type: Spontaneous
  Country: US (occurrence: None)
  Receive Date: 20130207
  Receipt Date: 20130207
  Transmission Date: 20140127
  Serious: Yes (Death)
  Sender: FDA-Public Use
  Company Number: 2013020035

PATIENT
  Age: 22 Year
  Sex: Male

DRUGS (8)
  1. FLUOXETINE (FLUOXETINE) [Suspect]
  2. ZOLPIDEM (ZOLPIDEM) [Suspect]
  3. FENTANYL (FENTANYL) [Suspect]
  4. METOPROLOL (METOPROLOL) [Suspect]
  5. ETHANOL (ETHANOL) (UNKNOWN) (ETHANOL) [Suspect]
  6. TRAZODONE (TRAZODONE) [Suspect]
  7. DIAZEPAM (DIAZEPAM) [Suspect]
  8. QUETIAPINE (QUETIAPINE) (QUETIAPINE) [Suspect]

REACTIONS (1)
  - Drug abuse [None]
